FAERS Safety Report 5987523-9 (Version None)
Quarter: 2008Q4

REPORT INFORMATION
  Report Type: 
  Country: None (occurrence: None)
  Receive Date: 20081128
  Receipt Date: 20080903
  Transmission Date: 20090506
  Serious: Yes (Hospitalization)
  Sender: FDA-Public Use
  Company Number: FLCT20080171

PATIENT
  Age: 38 Year
  Sex: Female
  Weight: 90.7194 kg

DRUGS (7)
  1. FLECTOR [Suspect]
     Indication: BACK PAIN
     Dosage: 1 PLASTER, 1 AS REQUIRED, TOPICAL
     Route: 061
     Dates: start: 20080331, end: 20080629
  2. TORADOL [Suspect]
     Indication: BACK PAIN
     Dosage: ONCE DAILY, INTRAMUSCULAR
     Route: 030
     Dates: start: 20080501
  3. PEPCID [Concomitant]
  4. CYMBALTA [Concomitant]
  5. NORCO [Concomitant]
  6. LUNESTA [Concomitant]
  7. PROVIGIL [Concomitant]

REACTIONS (3)
  - BACK INJURY [None]
  - FALL [None]
  - GASTROINTESTINAL HAEMORRHAGE [None]
